FAERS Safety Report 8565645-6 (Version None)
Quarter: 2012Q3

REPORT INFORMATION
  Report Type: 
  Country: None (occurrence: None)
  Receive Date: 20120803
  Receipt Date: 20120723
  Transmission Date: 20120928
  Serious: Yes (Hospitalization)
  Sender: FDA-Public Use
  Company Number: US-ELI_LILLY_AND_COMPANY-US201207008200

PATIENT
  Sex: Male

DRUGS (1)
  1. HUMULIN N [Suspect]
     Indication: DIABETES MELLITUS
     Dosage: 32 U, BID
     Dates: start: 20090101

REACTIONS (3)
  - MOTOR DYSFUNCTION [None]
  - PROSTATITIS [None]
  - ADVERSE EVENT [None]
